FAERS Safety Report 14349362 (Version 2)
Quarter: 2018Q3

REPORT INFORMATION
  Report Type: Report from Study
  Country: FR (occurrence: FR)
  Receive Date: 20180104
  Receipt Date: 20180824
  Transmission Date: 20181010
  Serious: Yes (Other)
  Sender: FDA-Public Use
  Company Number: FR-009507513-1712FRA012892

PATIENT
  Age: 40 Year
  Sex: Male
  Weight: 92 kg

DRUGS (11)
  1. DUPILUMAB [Suspect]
     Active Substance: DUPILUMAB
     Indication: DERMATITIS ATOPIC
     Dosage: 600 MG; IN TOTAL
     Route: 058
     Dates: start: 20170516, end: 20170516
  2. DUPILUMAB [Suspect]
     Active Substance: DUPILUMAB
     Dosage: 300 MICROGRAM,QOW
     Route: 058
     Dates: start: 20170531
  3. DUPILUMAB [Suspect]
     Active Substance: DUPILUMAB
     Indication: DERMATITIS ATOPIC
     Dosage: 300 MG, QOW
     Route: 058
     Dates: start: 2017
  4. PRIVIGEN [Concomitant]
     Active Substance: HUMAN IMMUNOGLOBULIN G
  5. RHINOFLUIMUCIL [Concomitant]
     Active Substance: ACETYLCYSTEINE\BENZALKONIUM CHLORIDE\TUAMINOHEPTANE SULFATE
     Dosage: UNK UNK,UNK
     Route: 065
  6. KESTIN [Concomitant]
     Active Substance: EBASTINE
     Indication: CONJUNCTIVITIS
     Dosage: 2 DF,QD
     Route: 048
     Dates: start: 2009
  7. KESTIN [Concomitant]
     Active Substance: EBASTINE
     Indication: PRURITUS
  8. XYZALL [Concomitant]
     Active Substance: LEVOCETIRIZINE DIHYDROCHLORIDE
  9. COTAREG [Concomitant]
     Active Substance: HYDROCHLOROTHIAZIDE\VALSARTAN
     Indication: HYPERTENSION
     Dosage: 1 DF,QD
     Route: 048
     Dates: start: 2014
  10. CELESTENE [Suspect]
     Active Substance: BETAMETHASONE
     Indication: DERMATITIS ATOPIC
     Dosage: 2 DF, QD
     Route: 048
     Dates: start: 201604, end: 201705
  11. INNOVAIR [Concomitant]
     Active Substance: BECLOMETHASONE DIPROPIONATE\FORMOTEROL

REACTIONS (3)
  - Hyperhidrosis [Recovered/Resolved]
  - Conjunctivitis [Not Recovered/Not Resolved]
  - Cataract [Not Recovered/Not Resolved]

NARRATIVE: CASE EVENT DATE: 20170523
